FAERS Safety Report 8443565-5 (Version None)
Quarter: 2012Q2

REPORT INFORMATION
  Report Type: 
  Country: None (occurrence: None)
  Receive Date: 20120618
  Receipt Date: 20120612
  Transmission Date: 20120825
  Serious: No
  Sender: FDA-Public Use
  Company Number: US-PFIZER INC-2012141763

PATIENT
  Sex: Female
  Weight: 73.923 kg

DRUGS (8)
  1. SOMAVERT [Suspect]
     Indication: INSULIN-LIKE GROWTH FACTOR INCREASED
     Dosage: 20 MG, 1X/DAY
     Dates: start: 20080401
  2. HYDROCORTISONE [Concomitant]
     Dosage: UNK
  3. EFFEXOR [Concomitant]
     Indication: DEPRESSION
     Dosage: UNK
  4. LEVOTHYROXINE [Concomitant]
     Dosage: UNK
  5. TESTOSTERONE [Concomitant]
     Dosage: UNK
  6. SOMAVERT [Suspect]
     Dosage: 10 MG, 1X/DAY
     Dates: start: 20110101
  7. THYROID [Concomitant]
     Dosage: UNK
  8. PROGESTERONE [Concomitant]
     Dosage: UNK

REACTIONS (2)
  - WHITE BLOOD CELL COUNT DECREASED [None]
  - DEPRESSION [None]
